FAERS Safety Report 5263684-4 (Version None)
Quarter: 2007Q1

REPORT INFORMATION
  Report Type: 
  Country: None (occurrence: None)
  Receive Date: 20070312
  Receipt Date: 20070312
  Transmission Date: 20070707
  Serious: Yes (Life-Threatening, Other)
  Sender: FDA-Public Use
  Company Number: None

PATIENT
  Sex: Male
  Weight: 58.9676 kg

DRUGS (1)
  1. METHYLPHENIDATE HCL [Suspect]
     Indication: ATTENTION DEFICIT/HYPERACTIVITY DISORDER
     Dosage: 20MG ONLY 1 PILL ORAL (TAKEN 4 TIMES)
     Route: 048

REACTIONS (7)
  - ASTHENIA [None]
  - FEAR [None]
  - FEELING ABNORMAL [None]
  - LIVER DISORDER [None]
  - RENAL PAIN [None]
  - TINNITUS [None]
  - VISUAL DISTURBANCE [None]
